FAERS Safety Report 4694216-7 (Version None)
Quarter: 2005Q2

REPORT INFORMATION
  Report Type: 
  Country: None (occurrence: None)
  Receive Date: 20050616
  Receipt Date: 20050616
  Transmission Date: 20051028
  Serious: No
  Sender: FDA-Public Use
  Company Number: None

PATIENT
  Age: 36 Year
  Sex: Female
  Weight: 107.9561 kg

DRUGS (4)
  1. TOPAMAX [Suspect]
     Indication: DEPRESSION
     Dosage: 50 MG QD PO
     Route: 048
  2. TOPAMAX [Suspect]
     Indication: MIGRAINE
     Dosage: 50 MG QD PO
     Route: 048
  3. CYMBALTA [Concomitant]
  4. XANAX [Concomitant]

REACTIONS (2)
  - GLAUCOMA [None]
  - VISION BLURRED [None]
